FAERS Safety Report 8430379-5 (Version None)
Quarter: 2012Q2

REPORT INFORMATION
  Report Type: 
  Country: None (occurrence: None)
  Receive Date: 20120612
  Receipt Date: 20120510
  Transmission Date: 20120825
  Serious: Yes (Death, Disabling)
  Sender: FDA-Public Use
  Company Number: AU-ACTELION-A-CH2010-34194

PATIENT
  Sex: Female
  Weight: 96 kg

DRUGS (8)
  1. TRACLEER [Suspect]
     Indication: PULMONARY ARTERIAL HYPERTENSION
     Dosage: 62.5 MG, BID
     Route: 048
     Dates: start: 20090919, end: 20101018
  2. SILDENAFIL [Suspect]
     Indication: PULMONARY ARTERIAL HYPERTENSION
     Dosage: 20 MG, TID
     Route: 048
     Dates: start: 20100101, end: 20120101
  3. RABEPRAZOLE SODIUM [Concomitant]
  4. OXYGEN [Concomitant]
  5. TRACLEER [Suspect]
     Dosage: 125 MG, BID
     Route: 048
     Dates: start: 20101019, end: 20120329
  6. VENTAVIS [Suspect]
     Indication: PULMONARY ARTERIAL HYPERTENSION
     Dosage: 20 ?G, Q4HRS
     Route: 055
     Dates: start: 20100101, end: 20120301
  7. LASIX [Concomitant]
  8. SPIRACTIN [Concomitant]

REACTIONS (10)
  - DISEASE PROGRESSION [None]
  - CARDIAC ARREST [None]
  - EXERCISE TEST ABNORMAL [None]
  - PULMONARY ARTERIAL HYPERTENSION [None]
  - EXERCISE TOLERANCE DECREASED [None]
  - RIGHT VENTRICULAR FAILURE [None]
  - DYSPNOEA [None]
  - RESPIRATORY ARREST [None]
  - RESPIRATORY FAILURE [None]
  - PULMONARY ARTERIAL PRESSURE INCREASED [None]
